FAERS Safety Report 4732674-X (Version None)
Quarter: 2005Q3

REPORT INFORMATION
  Report Type: 
  Country: None (occurrence: None)
  Receive Date: 20050803
  Receipt Date: 20050708
  Transmission Date: 20060218
  Serious: Yes (Hospitalization, Disabling)
  Sender: FDA-Public Use
  Company Number: 2005AP03791

PATIENT
  Age: 30778 Day
  Sex: Female

DRUGS (16)
  1. SEROQUEL [Suspect]
     Indication: DEMENTIA ALZHEIMER'S TYPE
     Route: 048
     Dates: start: 20050317, end: 20050330
  2. SEROQUEL [Suspect]
     Indication: HALLUCINATION, AUDITORY
     Route: 048
     Dates: start: 20050317, end: 20050330
  3. SEROQUEL [Suspect]
     Route: 048
     Dates: start: 20050331, end: 20050427
  4. SEROQUEL [Suspect]
     Route: 048
     Dates: start: 20050331, end: 20050427
  5. SEROQUEL [Suspect]
     Route: 048
     Dates: start: 20050428, end: 20050609
  6. SEROQUEL [Suspect]
     Route: 048
     Dates: start: 20050428, end: 20050609
  7. SEROQUEL [Suspect]
     Route: 048
     Dates: start: 20050623
  8. SEROQUEL [Suspect]
     Route: 048
     Dates: start: 20050623
  9. ROCALTROL [Concomitant]
     Route: 048
  10. CARDENALIN [Concomitant]
     Route: 048
  11. NICARDIPINE HCL [Concomitant]
     Route: 048
  12. ARICEPT [Concomitant]
     Indication: DEMENTIA ALZHEIMER'S TYPE
     Route: 048
  13. GASTER [Concomitant]
     Route: 048
  14. TILCOTIL [Concomitant]
     Route: 048
  15. ASPIRIN [Concomitant]
     Indication: CEREBRAL INFARCTION
     Route: 048
  16. CELGOTIN S [Concomitant]
     Indication: CEREBRAL INFARCTION

REACTIONS (1)
  - CEREBRAL INFARCTION [None]
